FAERS Safety Report 6466557-4 (Version None)
Quarter: 2009Q4

REPORT INFORMATION
  Report Type: 
  Country: None (occurrence: None)
  Receive Date: 20091202
  Receipt Date: 20091123
  Transmission Date: 20100525
  Serious: Yes (Hospitalization)
  Sender: FDA-Public Use
  Company Number: US-TEVA-216064USA

PATIENT
  Sex: Female
  Weight: 67.646 kg

DRUGS (8)
  1. LEUCOVORIN CALCIUM TABLET 5MG [Suspect]
     Indication: COLORECTAL CANCER
     Route: 042
     Dates: start: 20090922, end: 20090922
  2. OXALIPLATIN [Suspect]
     Indication: COLORECTAL CANCER
     Route: 042
     Dates: start: 20090826, end: 20090922
  3. FLUOROURACIL [Suspect]
     Indication: COLORECTAL CANCER
     Dosage: 580MG BOLUS, 3.5GM CONTINUOUS INFUSION
     Route: 042
     Dates: start: 20090826, end: 20090922
  4. DIPHENOXYLATE HCL AND ATROPINE SULFATE [Concomitant]
     Indication: DIARRHOEA
     Dosage: 1 TO TWO TABS AS NEEDED
     Route: 048
     Dates: start: 20090324
  5. PROMETHAZINE HCL [Concomitant]
     Indication: NAUSEA
     Dosage: PRN
     Dates: start: 20090908, end: 20090926
  6. TEMAZEPAM [Concomitant]
     Indication: SLEEP DISORDER
     Dates: start: 20090417
  7. B-KOMPLEX [Concomitant]
     Indication: ANAEMIA
     Route: 048
     Dates: start: 20090909
  8. HYDROCODONE [Concomitant]
     Indication: PAIN
     Dosage: RARELY
     Dates: start: 20090302

REACTIONS (4)
  - HYPOKALAEMIA [None]
  - ILEUS [None]
  - NAUSEA [None]
  - VOMITING [None]
